FAERS Safety Report 7400772-8 (Version None)
Quarter: 2011Q2

REPORT INFORMATION
  Report Type: 
  Country: None (occurrence: None)
  Receive Date: 20110407
  Receipt Date: 20110331
  Transmission Date: 20111010
  Serious: Yes (Hospitalization)
  Sender: FDA-Public Use
  Company Number: B0696550A

PATIENT
  Sex: Male
  Weight: 75 kg

DRUGS (37)
  1. ZYLORIC [Concomitant]
     Route: 002
     Dates: start: 20070222, end: 20070314
  2. ADALAT [Concomitant]
     Dosage: 5MG PER DAY
     Route: 048
     Dates: start: 20070225, end: 20070301
  3. PRIMPERAN TAB [Concomitant]
     Dosage: 4ML PER DAY
     Dates: start: 20070305
  4. AMIKACIN SULFATE [Concomitant]
     Dosage: 2ML PER DAY
     Dates: start: 20070307
  5. GASLON N [Concomitant]
     Dosage: 4MG PER DAY
     Route: 048
     Dates: start: 20070214, end: 20070508
  6. DIFLUCAN [Concomitant]
     Dosage: 400MG PER DAY
     Route: 048
     Dates: start: 20070219, end: 20070307
  7. KOLANTYL [Concomitant]
     Dosage: 3G PER DAY
     Route: 048
     Dates: start: 20070312, end: 20070508
  8. SPARFLOXACIN [Concomitant]
     Dosage: 300MG PER DAY
     Route: 048
     Dates: start: 20070314
  9. BLOPRESS [Concomitant]
     Dosage: 8MG PER DAY
     Route: 048
     Dates: start: 20070214, end: 20070508
  10. METHYCOBAL [Concomitant]
     Dosage: 1500MCG PER DAY
     Route: 048
     Dates: start: 20070221, end: 20070508
  11. ISODINE GARGLE [Concomitant]
     Route: 002
     Dates: start: 20070226, end: 20070312
  12. MEYLON [Concomitant]
     Dosage: 80ML PER DAY
     Route: 042
     Dates: start: 20070225, end: 20070227
  13. VENOGLOBULIN [Concomitant]
     Dosage: 2IUAX PER DAY
     Route: 042
     Dates: start: 20070307
  14. BUSULFAN [Suspect]
     Indication: STEM CELL TRANSPLANT
     Dosage: 4MGK PER DAY
     Route: 048
     Dates: start: 20070223
  15. ADOFEED [Concomitant]
     Route: 062
     Dates: start: 20070226, end: 20070226
  16. LOXONIN [Concomitant]
     Dosage: 60MG PER DAY
     Route: 048
     Dates: start: 20070226, end: 20070306
  17. PRIMPERAN TAB [Concomitant]
     Dosage: 8ML PER DAY
     Dates: start: 20070222
  18. FUNGUARD [Concomitant]
     Dosage: 3IUAX PER DAY
     Route: 042
     Dates: start: 20070307, end: 20070313
  19. ALKERAN [Suspect]
     Indication: STEM CELL TRANSPLANT
     Dosage: 70MGM2 PER DAY
     Route: 042
     Dates: start: 20070226
  20. MAALOX [Concomitant]
     Dosage: 4.8G PER DAY
     Route: 048
     Dates: start: 20070214, end: 20070308
  21. CYTOTEC [Concomitant]
     Dosage: 200MCG PER DAY
     Route: 048
     Dates: start: 20070226, end: 20070306
  22. XYLOCAINE [Concomitant]
     Dosage: 100ML PER DAY
     Route: 065
     Dates: start: 20070313, end: 20070313
  23. HEPARIN [Concomitant]
     Dosage: 20ML PER DAY
     Route: 042
     Dates: start: 20070221, end: 20070313
  24. PRIMPERAN TAB [Concomitant]
     Dosage: 2ML PER DAY
     Dates: start: 20070304
  25. NEOLAMIN [Concomitant]
     Dosage: 10ML PER DAY
     Route: 042
     Dates: start: 20070304
  26. FUNGIZONE [Concomitant]
     Dosage: 60ML PER DAY
     Route: 002
     Dates: start: 20070219, end: 20070318
  27. CRAVIT [Concomitant]
     Dosage: 400MG PER DAY
     Route: 048
     Dates: start: 20070219, end: 20070304
  28. DEPAS [Concomitant]
     Dosage: 1.5MG PER DAY
     Route: 048
     Dates: start: 20070304, end: 20070311
  29. MEROPEN [Concomitant]
     Dosage: 4IUAX PER DAY
     Route: 042
     Dates: start: 20070307
  30. GRAN [Concomitant]
     Dosage: 150MCG PER DAY
     Dates: start: 20070306, end: 20070311
  31. URINORM [Concomitant]
     Dosage: 50MG PER DAY
     Route: 048
     Dates: start: 20070214, end: 20070508
  32. HACHIAZULE [Concomitant]
     Route: 002
     Dates: start: 20070311, end: 20070402
  33. KYTRIL [Concomitant]
     Dosage: 6ML PER DAY
     Dates: start: 20070222
  34. HAPTOGLOBIN [Concomitant]
     Dosage: 1IUAX PER DAY
     Route: 042
     Dates: start: 20070301, end: 20070301
  35. OMEPRAL [Concomitant]
     Dosage: 20MG PER DAY
     Route: 048
     Dates: start: 20070214, end: 20070508
  36. SOLU-CORTEF [Concomitant]
     Dosage: 2IUAX PER DAY
     Dates: start: 20070226, end: 20070318
  37. MODACIN [Concomitant]
     Dosage: 4IUAX PER DAY
     Route: 042
     Dates: start: 20070305

REACTIONS (2)
  - C-REACTIVE PROTEIN INCREASED [None]
  - STAPHYLOCOCCAL INFECTION [None]
